FAERS Safety Report 13753942 (Version 2)
Quarter: 2017Q3

REPORT INFORMATION
  Report Type: Report from Study
  Country: None (occurrence: US)
  Receive Date: 20170713
  Receipt Date: 20170720
  Transmission Date: 20171127
  Serious: Yes (Hospitalization)
  Sender: FDA-Public Use
  Company Number: US-ABBVIE-17K-163-2038216-00

PATIENT
  Age: 48 Year
  Sex: Male

DRUGS (2)
  1. HUMIRA [Suspect]
     Active Substance: ADALIMUMAB
     Dosage: DAY 15
     Route: 058
     Dates: start: 20170714, end: 20170714
  2. HUMIRA [Suspect]
     Active Substance: ADALIMUMAB
     Indication: CROHN^S DISEASE
     Dosage: DAY 1
     Route: 058
     Dates: start: 20170630, end: 20170630

REACTIONS (5)
  - Gastritis [Unknown]
  - Rectal haemorrhage [Recovering/Resolving]
  - Crohn^s disease [Unknown]
  - Dehydration [Unknown]
  - Malnutrition [Unknown]

NARRATIVE: CASE EVENT DATE: 201707
